FAERS Safety Report 18255549 (Version 1)
Quarter: 2020Q3

REPORT INFORMATION
  Report Type: Spontaneous
  Country: DE (occurrence: DE)
  Receive Date: 20200910
  Receipt Date: 20200910
  Transmission Date: 20201103
  Serious: Yes (Life-Threatening, Other)
  Sender: FDA-Public Use
  Company Number: NVSC2020DE246061

PATIENT
  Age: 52 Year
  Sex: Female
  Weight: 63 kg

DRUGS (9)
  1. CHLORPROTHIXENE [Suspect]
     Active Substance: CHLORPROTHIXENE
     Indication: MUTISM
  2. ESCITALOPRAM [Concomitant]
     Active Substance: ESCITALOPRAM OXALATE
     Indication: PRODUCT USED FOR UNKNOWN INDICATION
     Dosage: UNK
     Route: 065
     Dates: start: 20200626, end: 20200818
  3. RISPERIDONE. [Suspect]
     Active Substance: RISPERIDONE
     Indication: MUTISM
     Dosage: 2 MG (2 SEPARATED DOSES)
     Route: 048
     Dates: start: 20200717, end: 20200720
  4. RISPERIDONE. [Suspect]
     Active Substance: RISPERIDONE
     Indication: PSYCHOTIC DISORDER
  5. CHLORPROTHIXENE [Suspect]
     Active Substance: CHLORPROTHIXENE
     Indication: PSYCHOTIC DISORDER
     Dosage: 90 MG (3 SEPARATED DOSES)
     Route: 048
     Dates: start: 20200716, end: 20200720
  6. RISPERIDONE. [Suspect]
     Active Substance: RISPERIDONE
     Indication: CATATONIA
  7. CHLORPROTHIXENE [Suspect]
     Active Substance: CHLORPROTHIXENE
     Indication: CATATONIA
  8. QUETIAPINE. [Concomitant]
     Active Substance: QUETIAPINE
     Indication: DEPRESSIVE DELUSION
     Dosage: 600 MG (RETARD)
     Route: 065
     Dates: start: 2010, end: 202008
  9. PROTHIPENDYL [Concomitant]
     Active Substance: PROTHIPENDYL
     Indication: PRODUCT USED FOR UNKNOWN INDICATION
     Dosage: UNK
     Route: 065
     Dates: start: 20200703

REACTIONS (3)
  - Rhabdomyolysis [Recovered/Resolved]
  - Neuropathy peripheral [Not Recovered/Not Resolved]
  - Neuroleptic malignant syndrome [Recovered/Resolved]

NARRATIVE: CASE EVENT DATE: 20200720
